FAERS Safety Report 9759618 (Version 2)
Quarter: 2013Q4

REPORT INFORMATION
  Report Type: Spontaneous
  Country: US (occurrence: US)
  Receive Date: 20131216
  Receipt Date: 20131216
  Transmission Date: 20140711
  Serious: No
  Sender: FDA-Public Use
  Company Number: US-GILEAD-2010-0028234

PATIENT
  Sex: Female
  Weight: 63.05 kg

DRUGS (18)
  1. LETAIRIS [Suspect]
     Indication: PULMONARY ARTERIAL HYPERTENSION
     Route: 048
     Dates: start: 20090130
  2. REMODULIN [Concomitant]
  3. WARFARIN [Concomitant]
  4. OXYGEN [Concomitant]
  5. SPIRONOLACTONE [Concomitant]
  6. CLONIDINE [Concomitant]
  7. PROAIR HFA [Concomitant]
  8. ALLEGRA [Concomitant]
  9. AMITRIPTYLINE [Concomitant]
  10. NEXIUM [Concomitant]
  11. LYRICA [Concomitant]
  12. GABAPENTIN [Concomitant]
  13. KETOPROFEN [Concomitant]
  14. LIDOCAINE [Concomitant]
  15. KETAMINE [Concomitant]
  16. CALCIUM +D [Concomitant]
  17. POLOXAMER [Concomitant]
  18. LECITHIN [Concomitant]

REACTIONS (2)
  - Malaise [Unknown]
  - Syncope [Unknown]
